FAERS Safety Report 9090853 (Version 1)
Quarter: 2013Q1

REPORT INFORMATION
  Report Type: Report from Study
  Country: FR (occurrence: DE)
  Receive Date: 20130131
  Receipt Date: 20130131
  Transmission Date: 20140127
  Serious: Yes (Life-Threatening, Hospitalization)
  Sender: FDA-Public Use
  Company Number: FR-OTSUKA-US-2013-10149

PATIENT
  Age: 60 Year
  Sex: Female
  Weight: 86.5 kg

DRUGS (3)
  1. BUSULFEX [Suspect]
     Indication: BONE MARROW CONDITIONING REGIMEN
     Dosage: 64 MG MILLIGRAM(S), UNKNOWN
     Route: 042
     Dates: start: 20110616, end: 20110617
  2. ANTITHYMOCYTE IMMUNOGLOBULIN [Suspect]
     Indication: BONE MARROW CONDITIONING REGIMEN
     Dosage: 800 MG MILLIGRAM(S), UNK
     Route: 042
     Dates: start: 20110616, end: 20110617
  3. FLUDARABINE PHOSPHATE [Concomitant]
     Dosage: UNK UNK, UNKNOWN
     Dates: start: 20110614, end: 20110617

REACTIONS (2)
  - Convulsion [Recovered/Resolved]
  - Hypoventilation [Recovered/Resolved]
